FAERS Safety Report 9702086 (Version 2)
Quarter: 2013Q4

REPORT INFORMATION
  Report Type: Spontaneous
  Country: DE (occurrence: DE)
  Receive Date: 20131121
  Receipt Date: 20131217
  Transmission Date: 20140711
  Serious: Yes (Other)
  Sender: FDA-Public Use
  Company Number: DE-AMGEN-DEUSP2013080983

PATIENT
  Age: 88 Year
  Sex: Female

DRUGS (7)
  1. ENBREL [Suspect]
     Indication: RHEUMATOID ARTHRITIS
     Dosage: 50 MG, WEEKLY
     Route: 065
     Dates: start: 20130917
  2. HCT [Concomitant]
     Dosage: 12.5 UNK, UNK
  3. ENALAPRIL [Concomitant]
     Dosage: 10 UNK, UNK
  4. BISOPROLOL [Concomitant]
     Dosage: 5 UNK, UNK
  5. PREDNISOLON                        /00016201/ [Concomitant]
     Dosage: 5 UNK, UNK
  6. ARAVA [Concomitant]
     Dosage: 20 UNK, UNK
  7. DEKRISTOL [Concomitant]
     Dosage: 20000 UNK, UNK

REACTIONS (3)
  - Rheumatoid arthritis [Not Recovered/Not Resolved]
  - Mobility decreased [Not Recovered/Not Resolved]
  - Drug ineffective [Not Recovered/Not Resolved]
